FAERS Safety Report 25722940 (Version 1)
Quarter: 2025Q3

REPORT INFORMATION
  Report Type: Spontaneous
  Country: US (occurrence: US)
  Receive Date: 20250825
  Receipt Date: 20250825
  Transmission Date: 20251021
  Serious: No
  Sender: Haleon PLC
  Company Number: US-HALEON-2259079

PATIENT

DRUGS (1)
  1. VOLTAREN ARTHRITIS PAIN [Suspect]
     Active Substance: DICLOFENAC SODIUM
     Indication: Restless legs syndrome
     Dates: start: 20250821

REACTIONS (2)
  - Hypoaesthesia [Not Recovered/Not Resolved]
  - Product use in unapproved indication [Unknown]

NARRATIVE: CASE EVENT DATE: 20250821
